FAERS Safety Report 5427937-9 (Version None)
Quarter: 2007Q3

REPORT INFORMATION
  Report Type: 
  Country: None (occurrence: None)
  Receive Date: 20070828
  Receipt Date: 20070807
  Transmission Date: 20080115
  Serious: Yes (Other)
  Sender: FDA-Public Use
  Company Number: GB-GILEAD-2007-0012991

PATIENT
  Sex: Female
  Weight: 34 kg

DRUGS (1)
  1. TRUVADA [Suspect]

REACTIONS (2)
  - BLOOD CREATININE INCREASED [None]
  - INCORRECT DOSE ADMINISTERED [None]
